FAERS Safety Report 20019697 (Version 2)
Quarter: 2021Q4

REPORT INFORMATION
  Report Type: Spontaneous
  Country: DE (occurrence: DE)
  Receive Date: 20211101
  Receipt Date: 20211102
  Transmission Date: 20220304
  Serious: Yes (Life-Threatening, Other)
  Sender: FDA-Public Use
  Company Number: DE-MLMSERVICE-20211013-3162736-1

PATIENT
  Age: 42 Year
  Sex: Female

DRUGS (7)
  1. DOCETAXEL [Suspect]
     Active Substance: DOCETAXEL
     Indication: Squamous cell carcinoma of head and neck
     Dosage: 70 MG/M2, CYCLIC
  2. CISPLATIN [Suspect]
     Active Substance: CISPLATIN
     Indication: Squamous cell carcinoma of head and neck
     Dosage: 200 MG/M2, CYCLIC ( (FREQ:5 {CYCLICAL};40 MG/M2)
  3. CARBOPLATIN [Suspect]
     Active Substance: CARBOPLATIN
     Indication: Squamous cell carcinoma of head and neck
     Dosage: UNK, CYCLIC (AREA UNDER THE CURVE 5)
  4. FLUOROURACIL [Suspect]
     Active Substance: FLUOROURACIL
     Indication: Squamous cell carcinoma of head and neck
     Dosage: 6000 MG/M2, CYCLIC (FREQ:6 {CYCLICAL})
  5. FLUOROURACIL [Suspect]
     Active Substance: FLUOROURACIL
     Dosage: 1000 MG/M2
  6. CETUXIMAB [Suspect]
     Active Substance: CETUXIMAB
     Indication: Squamous cell carcinoma of head and neck
     Dosage: 1250 MG/M2, CYCLIC  (FREQ:5 {CYCLICAL})
  7. CETUXIMAB [Suspect]
     Active Substance: CETUXIMAB
     Dosage: 400 MG/M2, CYCLIC

REACTIONS (4)
  - Toxicity to various agents [Unknown]
  - Vomiting [Unknown]
  - Mucosal inflammation [Unknown]
  - Nausea [Unknown]
